FAERS Safety Report 4664088-5 (Version None)
Quarter: 2005Q2

REPORT INFORMATION
  Report Type: 
  Country: None (occurrence: None)
  Receive Date: 20050516
  Receipt Date: 20050502
  Transmission Date: 20051028
  Serious: Yes (Other)
  Sender: FDA-Public Use
  Company Number: GAN-0015-05-USA

PATIENT
  Age: 77 Year
  Sex: Male

DRUGS (1)
  1. GANITE [Suspect]
     Indication: NON-HODGKIN'S LYMPHOMA
     Dosage: 300 MG/M2/DAY X7, INTRAVENOUS
     Route: 042

REACTIONS (4)
  - MACULAR DEGENERATION [None]
  - OPTIC NEUROPATHY [None]
  - RETINAL DISORDER [None]
  - RETINAL PIGMENTATION [None]
